FAERS Safety Report 7956377-3 (Version None)
Quarter: 2011Q4

REPORT INFORMATION
  Report Type: 
  Country: None (occurrence: None)
  Receive Date: 20111205
  Receipt Date: 20111128
  Transmission Date: 20120403
  Serious: Yes (Hospitalization)
  Sender: FDA-Public Use
  Company Number: JP-PFIZER INC-2011288917

PATIENT
  Age: 76 Year
  Sex: Female

DRUGS (1)
  1. SOLU-MEDROL [Suspect]
     Indication: NEUROMYELITIS OPTICA
     Dosage: 1000 MG DAILY
     Dates: start: 20100717, end: 20100719

REACTIONS (1)
  - PNEUMONIA [None]
